FAERS Safety Report 7358705-9 (Version None)
Quarter: 2011Q1

REPORT INFORMATION
  Report Type: 
  Country: None (occurrence: None)
  Receive Date: 20110317
  Receipt Date: 20110310
  Transmission Date: 20110831
  Serious: Yes (Other)
  Sender: FDA-Public Use
  Company Number: A0862302A

PATIENT
  Sex: Male
  Weight: 99.1 kg

DRUGS (4)
  1. LISINOPRIL [Concomitant]
  2. AVANDIA [Suspect]
     Dosage: 2MG TWICE PER DAY
     Route: 048
  3. ALLOPURINOL [Concomitant]
  4. METFORMIN HCL [Concomitant]

REACTIONS (6)
  - HEART INJURY [None]
  - FLUID OVERLOAD [None]
  - CEREBROVASCULAR ACCIDENT [None]
  - FLUID RETENTION [None]
  - LIVER INJURY [None]
  - CARDIAC ARREST [None]
